FAERS Safety Report 5497013-8 (Version None)
Quarter: 2007Q4

REPORT INFORMATION
  Report Type: 
  Country: None (occurrence: None)
  Receive Date: 20071018
  Receipt Date: 20070626
  Transmission Date: 20080405
  Serious: Yes (Other)
  Sender: FDA-Public Use
  Company Number: 2007046520

PATIENT
  Age: 70 Year
  Sex: Female
  Weight: 90.9 kg

DRUGS (3)
  1. GABAPENTIN [Suspect]
     Indication: NERVOUS SYSTEM DISORDER
     Dosage: 900 MG (300 MG, 3 IN 1 D)
     Dates: start: 20070403
  2. NEURONTIN [Suspect]
     Indication: PAIN IN EXTREMITY
  3. AMARYL (GLIMIPIRIDE) [Concomitant]

REACTIONS (2)
  - ALOPECIA [None]
  - SOMNOLENCE [None]
